FAERS Safety Report 7571582-6 (Version None)
Quarter: 2011Q2

REPORT INFORMATION
  Report Type: 
  Country: None (occurrence: None)
  Receive Date: 20110624
  Receipt Date: 20110615
  Transmission Date: 20111010
  Serious: Yes (Disabling)
  Sender: FDA-Public Use
  Company Number: FR-BRISTOL-MYERS SQUIBB COMPANY-15671514

PATIENT
  Age: 59 Year
  Sex: Male

DRUGS (1)
  1. MITOMYCIN [Suspect]
     Indication: TRANSITIONAL CELL CARCINOMA
     Dosage: FORMULATION:INJECTION
     Route: 043
     Dates: start: 20101122, end: 20101122

REACTIONS (1)
  - URETERIC STENOSIS [None]
